FAERS Safety Report 18700761 (Version 1)
Quarter: 2021Q1

REPORT INFORMATION
  Report Type: Spontaneous
  Country: US (occurrence: US)
  Receive Date: 20210105
  Receipt Date: 20210105
  Transmission Date: 20210419
  Serious: Yes (Hospitalization)
  Sender: FDA-Public Use
  Company Number: None

PATIENT
  Sex: Male
  Weight: 89.4 kg

DRUGS (2)
  1. GEMCITABINE HYDROCHLORIDE. [Concomitant]
     Active Substance: GEMCITABINE HYDROCHLORIDE
  2. CISPLATIN (119875) [Suspect]
     Active Substance: CISPLATIN

REACTIONS (3)
  - Syncope [None]
  - Chest X-ray abnormal [None]
  - Fall [None]

NARRATIVE: CASE EVENT DATE: 20210101
